FAERS Safety Report 23350351 (Version 1)
Quarter: 2023Q4

REPORT INFORMATION
  Report Type: Spontaneous
  Country: US (occurrence: US)
  Receive Date: 20231229
  Receipt Date: 20231229
  Transmission Date: 20240109
  Serious: No
  Sender: FDA-Public Use
  Company Number: US-BAYER-2023A186106

PATIENT
  Age: 79 Year
  Sex: Female

DRUGS (1)
  1. LOTRIMIN ULTRA ATHLETES FOOT [Suspect]
     Active Substance: BUTENAFINE HYDROCHLORIDE
     Dosage: NOT AVAILABLE
     Route: 061
     Dates: start: 202312, end: 202312

REACTIONS (1)
  - Nail infection [Recovering/Resolving]

NARRATIVE: CASE EVENT DATE: 20231201
